FAERS Safety Report 6687165-6 (Version None)
Quarter: 2010Q2

REPORT INFORMATION
  Report Type: 
  Country: None (occurrence: None)
  Receive Date: 20100416
  Receipt Date: 20100416
  Transmission Date: 20101027
  Serious: No
  Sender: FDA-Public Use
  Company Number: None

PATIENT
  Age: 48 Year
  Sex: Female

DRUGS (13)
  1. TAMIFLU [Suspect]
     Indication: INFLUENZA
     Dosage: BID
     Route: 048
  2. TAMIFLU [Suspect]
     Indication: INFLUENZA
     Dosage: BID
     Route: 048
     Dates: start: 20100305
  3. TAMIFLU [Suspect]
     Indication: INFLUENZA
     Dosage: BID
     Route: 048
     Dates: start: 20100306
  4. IBUPROFEN [Concomitant]
  5. PROZAC [Concomitant]
  6. BENAZEPRIL HYDROCHLORIDE [Concomitant]
  7. CYCLOBENZAPRINE [Concomitant]
  8. TEMAZEPAM [Concomitant]
  9. NORCO [Concomitant]
  10. LANTUS [Concomitant]
  11. HUMALOG [Concomitant]
  12. GABAPENTIN [Concomitant]
  13. HYDROCHLOROTHIAZIDE [Concomitant]

REACTIONS (6)
  - HALLUCINATION [None]
  - MUSCULAR WEAKNESS [None]
  - PNEUMONIA [None]
  - RENAL FAILURE [None]
  - RHABDOMYOLYSIS [None]
  - STUPOR [None]
